FAERS Safety Report 20584758 (Version 1)
Quarter: 2022Q1

REPORT INFORMATION
  Report Type: Report from Study
  Country: CY (occurrence: CY)
  Receive Date: 20220311
  Receipt Date: 20220311
  Transmission Date: 20220423
  Serious: Yes (Death, Other)
  Sender: FDA-Public Use
  Company Number: CY-NOVARTISPH-NVSC2022CY020906

PATIENT
  Age: 80 Year
  Sex: Female
  Weight: 76 kg

DRUGS (4)
  1. ALPELISIB [Suspect]
     Active Substance: ALPELISIB
     Indication: Breast cancer metastatic
     Dosage: 300 MG
     Route: 048
     Dates: start: 20211016
  2. ALPELISIB [Suspect]
     Active Substance: ALPELISIB
     Dosage: UNK
     Route: 065
     Dates: start: 20211025
  3. ALPELISIB [Suspect]
     Active Substance: ALPELISIB
     Dosage: UNK
     Route: 065
     Dates: start: 20211122, end: 20211130
  4. SALICYLATE [Concomitant]
     Active Substance: SALICYLIC ACID
     Indication: Product used for unknown indication
     Dosage: UNK
     Route: 065

REACTIONS (39)
  - Death [Fatal]
  - Myocardial infarction [Unknown]
  - Hip fracture [Recovering/Resolving]
  - Malignant neoplasm progression [Unknown]
  - Carbohydrate antigen 15-3 increased [Unknown]
  - Blood urea increased [Unknown]
  - C-reactive protein increased [Unknown]
  - Haemoglobin increased [Unknown]
  - Mean cell volume increased [Unknown]
  - Blood sodium decreased [Unknown]
  - Mean cell haemoglobin increased [Unknown]
  - Neutrophil count increased [Unknown]
  - Blood uric acid increased [Unknown]
  - Eosinophil count decreased [Unknown]
  - Blood alkaline phosphatase increased [Unknown]
  - Red blood cell count decreased [Unknown]
  - White blood cell count increased [Unknown]
  - Monocyte count increased [Unknown]
  - Fall [Unknown]
  - Aspartate aminotransferase increased [Unknown]
  - Lymphocyte count decreased [Unknown]
  - Gamma-glutamyltransferase increased [Unknown]
  - Alanine aminotransferase increased [Unknown]
  - Glycosylated haemoglobin increased [Unknown]
  - Blood magnesium decreased [Unknown]
  - Fatigue [Unknown]
  - Nausea [Unknown]
  - Blood creatinine increased [Recovered/Resolved]
  - Blood creatinine increased [Recovered/Resolved]
  - Blood glucose increased [Recovered/Resolved]
  - Blood glucose increased [Recovered/Resolved]
  - Blood glucose increased [Recovered/Resolved]
  - Fatigue [Unknown]
  - Dry mouth [Unknown]
  - Weight decreased [Unknown]
  - Polyuria [Unknown]
  - Polydipsia [Unknown]
  - Decreased appetite [Unknown]
  - COVID-19 [Unknown]

NARRATIVE: CASE EVENT DATE: 20211015
